FAERS Safety Report 7722668-4 (Version None)
Quarter: 2011Q3

REPORT INFORMATION
  Report Type: 
  Country: None (occurrence: None)
  Receive Date: 20110831
  Receipt Date: 20110822
  Transmission Date: 20111222
  Serious: Yes (Other)
  Sender: FDA-Public Use
  Company Number: US-ASTRAZENECA-2011SE50129

PATIENT
  Age: 71 Year
  Sex: Female
  Weight: 59.4 kg

DRUGS (2)
  1. NEXIUM [Suspect]
     Indication: GASTROOESOPHAGEAL REFLUX DISEASE
     Route: 048
  2. NAPROXIN [Concomitant]
     Indication: POSTOPERATIVE ANALGESIA

REACTIONS (2)
  - RENAL CANCER [None]
  - WEIGHT DECREASED [None]
